FAERS Safety Report 21047958 (Version 1)
Quarter: 2022Q3

REPORT INFORMATION
  Report Type: Spontaneous
  Country: SI (occurrence: None)
  Receive Date: 20220706
  Receipt Date: 20220706
  Transmission Date: 20221026
  Serious: Yes (Hospitalization, Other)
  Sender: FDA-Public Use
  Company Number: SI-ROCHE-3129688

PATIENT
  Age: 60 Year
  Sex: Male

DRUGS (1)
  1. RITUXIMAB [Suspect]
     Active Substance: RITUXIMAB
     Indication: Myocardial infarction
     Dosage: RITUXIMAB (4 X 375MG/M2)
     Route: 042
     Dates: start: 2016

REACTIONS (6)
  - Off label use [Unknown]
  - Therapy partial responder [Unknown]
  - Haemorrhage [Unknown]
  - Haematuria [Recovered/Resolved]
  - Muscle haemorrhage [Unknown]
  - Pain in extremity [Unknown]

NARRATIVE: CASE EVENT DATE: 20180101
